FAERS Safety Report 7367346-9 (Version None)
Quarter: 2011Q1

REPORT INFORMATION
  Report Type: 
  Country: None (occurrence: None)
  Receive Date: 20110322
  Receipt Date: 20110322
  Transmission Date: 20110831
  Serious: Yes (Other)
  Sender: FDA-Public Use
  Company Number: None

PATIENT
  Age: 35 Year
  Sex: Female
  Weight: 72.5755 kg

DRUGS (1)
  1. LUBRICATING JELLY DO NOT KNOW TRIAD [Suspect]
     Indication: VAGINAL DISORDER
     Dosage: ONE SQUIRT 1X VAG
     Route: 067
     Dates: start: 20101214, end: 20101214

REACTIONS (3)
  - DRUG INEFFECTIVE [None]
  - APPLICATION SITE RASH [None]
  - FUNGAL INFECTION [None]
